FAERS Safety Report 7815043-5 (Version None)
Quarter: 2011Q4

REPORT INFORMATION
  Report Type: 
  Country: None (occurrence: None)
  Receive Date: 20111014
  Receipt Date: 20111003
  Transmission Date: 20120403
  Serious: Yes (Other)
  Sender: FDA-Public Use
  Company Number: CA-JNJFOC-20111001682

PATIENT
  Sex: Female
  Weight: 70.9 kg

DRUGS (15)
  1. REMICADE [Suspect]
     Indication: CROHN'S DISEASE
     Route: 042
     Dates: start: 20080924
  2. PROMETRIUM [Concomitant]
     Dosage: AS AND WHEN NECESSARY
     Route: 065
  3. VENTOLIN [Concomitant]
     Route: 065
  4. SYMBICORT [Concomitant]
     Route: 065
  5. ZOPICLONE [Concomitant]
     Route: 065
  6. TRAZODONE HYDROCHLORIDE [Concomitant]
     Route: 065
  7. SCOPOLAMINE [Concomitant]
     Route: 065
  8. DOMPERIDONE [Concomitant]
     Route: 065
  9. PROZAC [Concomitant]
     Route: 065
  10. PREMARIN [Concomitant]
     Route: 065
  11. DOCUSATE CALCIUM [Concomitant]
     Route: 065
  12. METHADONE HCL [Concomitant]
     Route: 065
  13. ASPIRIN [Concomitant]
     Route: 065
  14. FLONASE [Concomitant]
     Dosage: AS AND WHEN NECESSARY
     Route: 065
  15. VITAMIN B-12 [Concomitant]
     Route: 065

REACTIONS (5)
  - ABDOMINAL PAIN [None]
  - BEHCET'S SYNDROME [None]
  - CENTRAL NERVOUS SYSTEM LESION [None]
  - FREQUENT BOWEL MOVEMENTS [None]
  - DIARRHOEA [None]
